FAERS Safety Report 17811626 (Version 1)
Quarter: 2020Q2

REPORT INFORMATION
  Report Type: Spontaneous
  Country: DE (occurrence: DE)
  Receive Date: 20200521
  Receipt Date: 20200521
  Transmission Date: 20200714
  Serious: Yes (Other)
  Sender: FDA-Public Use
  Company Number: DE-ACCORD-182707

PATIENT
  Age: 71 Year
  Sex: Male
  Weight: 77 kg

DRUGS (1)
  1. AZACITIDIN ACCORD [Suspect]
     Active Substance: AZACITIDINE
     Indication: MYELODYSPLASTIC SYNDROME
     Dosage: 75MG / M OVER 7 DAYS
     Route: 058
     Dates: start: 20200420, end: 20200428

REACTIONS (4)
  - Sleep disorder [Unknown]
  - Injection site vesicles [Recovering/Resolving]
  - Injection site pain [Recovering/Resolving]
  - Impaired quality of life [Unknown]

NARRATIVE: CASE EVENT DATE: 202004
